FAERS Safety Report 12089316 (Version 1)
Quarter: 2016Q1

REPORT INFORMATION
  Report Type: Spontaneous
  Country: BG (occurrence: BG)
  Receive Date: 20160218
  Receipt Date: 20160218
  Transmission Date: 20160526
  Serious: Yes (Death, Other)
  Sender: FDA-Public Use
  Company Number: BG-WATSON-2016-02734

PATIENT
  Age: 15 Year

DRUGS (1)
  1. HALOPERIDOL (UNKNOWN) [Suspect]
     Active Substance: HALOPERIDOL
     Indication: PATIENT RESTRAINT
     Dosage: UNK
     Route: 065

REACTIONS (3)
  - Overdose [Fatal]
  - Intentional product use issue [Fatal]
  - Malnutrition [Fatal]
